FAERS Safety Report 17134503 (Version 1)
Quarter: 2019Q4

REPORT INFORMATION
  Report Type: Spontaneous
  Country: US (occurrence: US)
  Receive Date: 20191118
  Receipt Date: 20191118
  Transmission Date: 20200122
  Serious: Yes (Hospitalization)
  Sender: FDA-Public Use
  Company Number: None

PATIENT
  Age: 71 Year
  Sex: Female

DRUGS (1)
  1. DALFAMPRIDINE 10MG ER [Suspect]
     Active Substance: DALFAMPRIDINE
     Indication: MULTIPLE SCLEROSIS
     Route: 048
     Dates: start: 20191115

REACTIONS (4)
  - Musculoskeletal stiffness [None]
  - Muscle spasticity [None]
  - Fall [None]
  - Mobility decreased [None]

NARRATIVE: CASE EVENT DATE: 20191115
